FAERS Safety Report 6859367-7 (Version None)
Quarter: 2010Q3

REPORT INFORMATION
  Report Type: 
  Country: None (occurrence: None)
  Receive Date: 20100719
  Receipt Date: 20080408
  Transmission Date: 20110219
  Serious: No
  Sender: FDA-Public Use
  Company Number: US-PFIZER INC-2008017772

PATIENT
  Sex: Female
  Weight: 72.7 kg

DRUGS (2)
  1. CHANTIX [Suspect]
     Indication: SMOKING CESSATION THERAPY
     Route: 048
     Dates: start: 20080211, end: 20080216
  2. ORAL CONTRACEPTIVE NOS [Concomitant]
     Route: 048

REACTIONS (7)
  - ABDOMINAL DISCOMFORT [None]
  - AGEUSIA [None]
  - AGITATION [None]
  - DEHYDRATION [None]
  - HEADACHE [None]
  - MOOD ALTERED [None]
  - THIRST [None]
